FAERS Safety Report 22298358 (Version 33)
Quarter: 2024Q4

REPORT INFORMATION
  Report Type: Report from Study
  Country: US (occurrence: US)
  Receive Date: 20230509
  Receipt Date: 20241127
  Transmission Date: 20250114
  Serious: Yes (Hospitalization, Other)
  Sender: TAKEDA
  Company Number: US-TAKEDA-20140509CINRY6418

PATIENT
  Age: 43 Year
  Sex: Female

DRUGS (10)
  1. HUMAN C1-ESTERASE INHIBITOR [Suspect]
     Active Substance: HUMAN C1-ESTERASE INHIBITOR
     Indication: Immune system disorder
     Dosage: UNK
  2. HUMAN C1-ESTERASE INHIBITOR [Suspect]
     Active Substance: HUMAN C1-ESTERASE INHIBITOR
     Indication: Hereditary angioedema
     Dosage: 2000 INTERNATIONAL UNIT
  3. HUMAN C1-ESTERASE INHIBITOR [Suspect]
     Active Substance: HUMAN C1-ESTERASE INHIBITOR
     Dosage: 500 INTERNATIONAL UNIT
  4. HUMAN C1-ESTERASE INHIBITOR [Suspect]
     Active Substance: HUMAN C1-ESTERASE INHIBITOR
     Dosage: 2000 INTERNATIONAL UNIT
  5. TAKHZYRO [Suspect]
     Active Substance: LANADELUMAB-FLYO
     Indication: Hereditary angioedema
     Dosage: 300 MILLIGRAM, Q2WEEKS
     Dates: start: 202311
  6. TAKHZYRO [Suspect]
     Active Substance: LANADELUMAB-FLYO
     Indication: Immune system disorder
  7. TAKHZYRO [Suspect]
     Active Substance: LANADELUMAB-FLYO
  8. EPINEPHRINE [Concomitant]
     Active Substance: EPINEPHRINE
     Dosage: UNK
  9. SODIUM CHLORIDE [Concomitant]
     Active Substance: SODIUM CHLORIDE
     Dosage: UNK
  10. ICATIBANT [Concomitant]
     Active Substance: ICATIBANT ACETATE

REACTIONS (27)
  - Abdominal abscess [Unknown]
  - Autoimmune disorder [Unknown]
  - Abdominal infection [Not Recovered/Not Resolved]
  - Hereditary angioedema [Recovered/Resolved]
  - Illness [Unknown]
  - Cystitis [Unknown]
  - Poor venous access [Unknown]
  - Weight decreased [Unknown]
  - Oedema [Unknown]
  - Mental disorder [Unknown]
  - Fluid retention [Unknown]
  - Heart rate increased [Unknown]
  - Polyuria [Unknown]
  - Localised infection [Unknown]
  - Inability to afford medication [Unknown]
  - Weight increased [Unknown]
  - Weight fluctuation [Unknown]
  - Confusional state [Unknown]
  - Thinking abnormal [Unknown]
  - Prescribed overdose [Unknown]
  - Product availability issue [Unknown]
  - Product dose omission issue [Unknown]
  - Obstructive airways disorder [Unknown]
  - Pituitary tumour benign [Unknown]
  - Haemorrhage [Unknown]
  - Circumstance or information capable of leading to medication error [Unknown]
  - Infusion site erythema [Unknown]

NARRATIVE: CASE EVENT DATE: 20221031
